FAERS Safety Report 6169246-9 (Version None)
Quarter: 2009Q2

REPORT INFORMATION
  Report Type: 
  Country: None (occurrence: None)
  Receive Date: 20090424
  Receipt Date: 20090413
  Transmission Date: 20091009
  Serious: Yes (Hospitalization)
  Sender: FDA-Public Use
  Company Number: 233745K09USA

PATIENT
  Age: 33 Year
  Sex: Female
  Weight: 79 kg

DRUGS (1)
  1. REBIF [Suspect]
     Indication: MULTIPLE SCLEROSIS
     Dosage: 22 MCG, 3 IN 1 WEEKS, SUBCUTANEOUS
     Route: 058
     Dates: start: 20090319

REACTIONS (18)
  - ARTHRITIS [None]
  - BLOOD GLUCOSE INCREASED [None]
  - BONE PAIN [None]
  - DRUG EFFECT DECREASED [None]
  - DRY MOUTH [None]
  - DYSPHAGIA [None]
  - EUPHORIC MOOD [None]
  - FALL [None]
  - FATIGUE [None]
  - HEAD INJURY [None]
  - HYPERHIDROSIS [None]
  - IRRITABILITY [None]
  - LOSS OF CONSCIOUSNESS [None]
  - MULTIPLE SCLEROSIS RELAPSE [None]
  - NECK INJURY [None]
  - OESOPHAGEAL CANDIDIASIS [None]
  - PYREXIA [None]
  - RASH [None]
